FAERS Safety Report 4914315-1 (Version None)
Quarter: 2006Q1

REPORT INFORMATION
  Report Type: 
  Country: None (occurrence: None)
  Receive Date: 20060213
  Receipt Date: 20060118
  Transmission Date: 20060701
  Serious: Yes (Other)
  Sender: FDA-Public Use
  Company Number: US-GDP-0612667

PATIENT
  Age: 28 Year
  Sex: Male
  Weight: 72.5755 kg

DRUGS (3)
  1. CLOBEX [Suspect]
     Indication: PSORIASIS
     Dosage: 1 APP QD TP
     Route: 061
     Dates: start: 20051109, end: 20060119
  2. RETIN-A [Concomitant]
  3. EREVOXYL [Concomitant]

REACTIONS (9)
  - FATIGUE [None]
  - HEART RATE INCREASED [None]
  - IMPAIRED WORK ABILITY [None]
  - INAPPROPRIATE SCHEDULE OF DRUG ADMINISTRATION [None]
  - INCORRECT DRUG ADMINISTRATION DURATION [None]
  - PANIC ATTACK [None]
  - PRURITUS [None]
  - SYNCOPE [None]
  - WEIGHT DECREASED [None]
